FAERS Safety Report 25361006 (Version 1)
Quarter: 2025Q2

REPORT INFORMATION
  Report Type: Spontaneous
  Country: CN (occurrence: CN)
  Receive Date: 20250527
  Receipt Date: 20250527
  Transmission Date: 20250717
  Serious: Yes (Other)
  Sender: JIANGSU HENGRUI
  Company Number: CN-JIANGSU HENGRUI PHARMACEUTICALS CO., LTD.-H2025216105

PATIENT
  Age: 46 Year
  Weight: 60 kg

DRUGS (5)
  1. CYCLOPHOSPHAMIDE [Suspect]
     Active Substance: CYCLOPHOSPHAMIDE
     Indication: Extramammary Paget^s disease
  2. CYCLOPHOSPHAMIDE [Suspect]
     Active Substance: CYCLOPHOSPHAMIDE
     Indication: Invasive ductal breast carcinoma
  3. PACLITAXEL [Suspect]
     Active Substance: PACLITAXEL
     Indication: Extramammary Paget^s disease
  4. PACLITAXEL [Suspect]
     Active Substance: PACLITAXEL
     Indication: Invasive ductal breast carcinoma
  5. SODIUM CHLORIDE [Concomitant]
     Active Substance: SODIUM CHLORIDE
     Indication: Vehicle solution use

REACTIONS (1)
  - Bleeding time prolonged [Not Recovered/Not Resolved]
